FAERS Safety Report 10035815 (Version 1)
Quarter: 2014Q1

REPORT INFORMATION
  Report Type: Spontaneous
  Country: FR (occurrence: FR)
  Receive Date: 20140325
  Receipt Date: 20140325
  Transmission Date: 20141002
  Serious: Yes (Other)
  Sender: FDA-Public Use
  Company Number: FR-ASTRAZENECA-2014SE19520

PATIENT
  Age: 45 Year
  Sex: Male

DRUGS (8)
  1. BRILIQUE [Suspect]
     Indication: MYOCARDIAL INFARCTION
     Dosage: LOADING DOSE, ONCE/SINGLE ADMINISTRATION
     Route: 048
     Dates: start: 20131223, end: 20131223
  2. BRILIQUE [Suspect]
     Indication: MYOCARDIAL INFARCTION
     Route: 048
     Dates: start: 20131223, end: 20140215
  3. PLAVIX [Concomitant]
     Indication: MYOCARDIAL INFARCTION
     Dates: start: 20140215, end: 20140317
  4. BISOPROLOL [Concomitant]
     Indication: MYOCARDIAL INFARCTION
     Dates: start: 201312, end: 201403
  5. BISOPROLOL [Concomitant]
     Indication: MYOCARDIAL INFARCTION
     Dates: start: 201403
  6. CRESTOR [Concomitant]
     Indication: MYOCARDIAL INFARCTION
     Dates: start: 201312
  7. KARDEGIC [Concomitant]
     Indication: MYOCARDIAL INFARCTION
     Dates: start: 201312
  8. PERINDOPRIL [Concomitant]
     Indication: MYOCARDIAL INFARCTION
     Dates: start: 201312

REACTIONS (1)
  - Thrombocytopenia [Not Recovered/Not Resolved]
